FAERS Safety Report 7438167-3 (Version None)
Quarter: 2011Q2

REPORT INFORMATION
  Report Type: 
  Country: None (occurrence: None)
  Receive Date: 20110421
  Receipt Date: 20110421
  Transmission Date: 20111010
  Serious: Yes (Hospitalization, Other)
  Sender: FDA-Public Use
  Company Number: None

PATIENT
  Age: 69 Year
  Sex: Male

DRUGS (8)
  1. ACYCLOVIR [Concomitant]
  2. RANITIDINE [Concomitant]
  3. GABAPENTIN [Concomitant]
  4. WARFARIN [Concomitant]
  5. ASPIRIN [Concomitant]
  6. REVLIMID [Suspect]
     Indication: MULTIPLE MYELOMA
     Dosage: REVLIMID 25 MG DAILY ORALLY
     Route: 048
     Dates: start: 20100101, end: 20100501
  7. METOPROLOL SUCCINATE [Concomitant]
  8. PROCHLORPERAZINE TAB [Concomitant]

REACTIONS (3)
  - DYSPNOEA [None]
  - ABDOMINAL PAIN UPPER [None]
  - PULMONARY EMBOLISM [None]
